FAERS Safety Report 21373982 (Version 1)
Quarter: 2022Q3

REPORT INFORMATION
  Report Type: Spontaneous
  Country: FR (occurrence: FR)
  Receive Date: 20220926
  Receipt Date: 20220926
  Transmission Date: 20221026
  Serious: Yes (Other)
  Sender: FDA-Public Use
  Company Number: FR-AFSSAPS-NY20222583

PATIENT
  Age: 73 Year
  Sex: Male

DRUGS (5)
  1. LIDOCAINE [Suspect]
     Active Substance: LIDOCAINE
     Indication: Induction of anaesthesia
     Dosage: UNK
     Route: 042
  2. KETAMINE [Suspect]
     Active Substance: KETAMINE
     Indication: Induction of anaesthesia
     Dosage: UNK
     Route: 042
  3. DIPRIVAN [Suspect]
     Active Substance: PROPOFOL
     Indication: Induction of anaesthesia
     Dosage: UNK
     Route: 042
  4. SUCCINYLCHOLINE [Suspect]
     Active Substance: SUCCINYLCHOLINE
     Indication: Induction of anaesthesia
     Dosage: UNK
     Route: 042
  5. SUFENTANIL [Suspect]
     Active Substance: SUFENTANIL
     Indication: Induction of anaesthesia
     Dosage: UNK
     Route: 042

REACTIONS (2)
  - Erythema [Recovered/Resolved]
  - Tachycardia [Recovered/Resolved]
